FAERS Safety Report 25840948 (Version 1)
Quarter: 2025Q3

REPORT INFORMATION
  Report Type: Spontaneous
  Country: US (occurrence: US)
  Receive Date: 20250924
  Receipt Date: 20250924
  Transmission Date: 20251021
  Serious: Yes (Death, Life-Threatening, Hospitalization, Other)
  Sender: SANDOZ
  Company Number: US-002147023-NVSC2020US000770

PATIENT
  Age: 62 Year
  Sex: Female

DRUGS (2)
  1. MYCOPHENOLATE MOFETIL [Suspect]
     Active Substance: MYCOPHENOLATE MOFETIL
     Indication: Systemic lupus erythematosus
     Route: 065
  2. PREDNISONE [Suspect]
     Active Substance: PREDNISONE
     Indication: Systemic lupus erythematosus
     Route: 065

REACTIONS (13)
  - Multiple organ dysfunction syndrome [Fatal]
  - Pneumothorax [Fatal]
  - Stenotrophomonas infection [Fatal]
  - Pneumonia bacterial [Fatal]
  - Herpes zoster disseminated [Fatal]
  - Acute respiratory distress syndrome [Fatal]
  - Varicella zoster virus infection [Fatal]
  - Septic shock [Fatal]
  - Dyspnoea [Unknown]
  - Hypoxia [Unknown]
  - Hypotension [Unknown]
  - Rash [Unknown]
  - Product use in unapproved indication [Unknown]
